FAERS Safety Report 4600996-9 (Version None)
Quarter: 2005Q1

REPORT INFORMATION
  Report Type: 
  Country: None (occurrence: None)
  Receive Date: 20050307
  Receipt Date: 20050307
  Transmission Date: 20050727
  Serious: Yes (Hospitalization)
  Sender: FDA-Public Use
  Company Number: None

PATIENT
  Age: 72 Year
  Sex: Male

DRUGS (6)
  1. PRIMIDONE 50 MG BY LANNETT [Suspect]
     Indication: ESSENTIAL TREMOR
     Dosage: 1/4 - 1/2 TAB BID
     Dates: start: 20041201, end: 20050101
  2. PAXIL [Concomitant]
  3. ATENOLOL [Concomitant]
  4. PRINIVIL [Concomitant]
  5. ASPIRIN [Concomitant]
  6. MULTIVITAMIN [Concomitant]

REACTIONS (2)
  - CONDITION AGGRAVATED [None]
  - DEPRESSION [None]
